FAERS Safety Report 7206352-1 (Version None)
Quarter: 2010Q4

REPORT INFORMATION
  Report Type: 
  Country: None (occurrence: None)
  Receive Date: 20101228
  Receipt Date: 20101228
  Transmission Date: 20110411
  Serious: Yes (Life-Threatening, Hospitalization, Other)
  Sender: FDA-Public Use
  Company Number: None

PATIENT
  Age: 41 Year
  Sex: Male
  Weight: 113.3993 kg

DRUGS (2)
  1. TOLNAFTATE /CREAM WALGREENS/WALGREENS [Suspect]
     Dates: start: 20101218, end: 20101221
  2. TOLNAFTATE/POWDER SPRAY [Suspect]

REACTIONS (2)
  - RASH [None]
  - TINEA CRURIS [None]
